FAERS Safety Report 6286714-X (Version None)
Quarter: 2009Q3

REPORT INFORMATION
  Report Type: 
  Country: None (occurrence: None)
  Receive Date: 20090727
  Receipt Date: 20090727
  Transmission Date: 20100115
  Serious: Yes (Death, Life-Threatening, Disabling)
  Sender: FDA-Public Use
  Company Number: None

PATIENT
  Age: 80 Year
  Sex: Male
  Weight: 66.2252 kg

DRUGS (2)
  1. ALBUTEROL SULFATE SOLUTION IN VIAL [Suspect]
     Dosage: 3 MG 85 VIALS 2 X DAYS ON EVERY 6 HRS
     Dates: start: 20090603, end: 20090610
  2. IPRATROPIUM BROMIDE [Suspect]
     Dosage: 2.5 85 VIALS SAME TOGETHER
     Dates: start: 20090603, end: 20090610

REACTIONS (15)
  - BLOOD PRESSURE INCREASED [None]
  - BRONCHOSPASM [None]
  - DYSPHAGIA [None]
  - EYE ROLLING [None]
  - FLUSHING [None]
  - HYPOPHAGIA [None]
  - LUNG DISORDER [None]
  - OCULAR HYPERAEMIA [None]
  - OESOPHAGEAL OBSTRUCTION [None]
  - PALPITATIONS [None]
  - RETCHING [None]
  - STARVATION [None]
  - THERMAL BURN [None]
  - THROAT TIGHTNESS [None]
  - UNRESPONSIVE TO STIMULI [None]
